FAERS Safety Report 7338703-1 (Version None)
Quarter: 2011Q1

REPORT INFORMATION
  Report Type: 
  Country: None (occurrence: None)
  Receive Date: 20110308
  Receipt Date: 20110228
  Transmission Date: 20110831
  Serious: Yes (Death)
  Sender: FDA-Public Use
  Company Number: A0916818A

PATIENT
  Sex: Male

DRUGS (1)
  1. LAMICTAL [Suspect]
     Dosage: 150U UNKNOWN
     Dates: start: 20100410

REACTIONS (3)
  - ROAD TRAFFIC ACCIDENT [None]
  - HEAD INJURY [None]
  - CONVULSION [None]
